FAERS Safety Report 9956354 (Version 1)
Quarter: 2014Q1

REPORT INFORMATION
  Report Type: Spontaneous
  Country: AU (occurrence: AU)
  Receive Date: 20140304
  Receipt Date: 20140304
  Transmission Date: 20141002
  Serious: Yes (Other)
  Sender: FDA-Public Use
  Company Number: AU-ASTRAZENECA-2014SE13135

PATIENT
  Age: 82 Year
  Sex: Female

DRUGS (3)
  1. SYMBICORT TURBUHALER [Suspect]
     Route: 055
  2. ONBREZ [Suspect]
  3. SPIRIVA [Suspect]

REACTIONS (1)
  - Angina unstable [Unknown]
